FAERS Safety Report 7208752-2 (Version None)
Quarter: 2011Q1

REPORT INFORMATION
  Report Type: 
  Country: None (occurrence: None)
  Receive Date: 20110104
  Receipt Date: 20101231
  Transmission Date: 20110831
  Serious: Yes (Hospitalization)
  Sender: FDA-Public Use
  Company Number: US-PFIZER INC-2010175994

PATIENT
  Sex: Male
  Weight: 86.168 kg

DRUGS (1)
  1. NARDIL [Suspect]
     Dosage: UNK
     Dates: start: 19840101, end: 20101107

REACTIONS (1)
  - PNEUMONIA [None]
